FAERS Safety Report 9050525 (Version 1)
Quarter: 2013Q1

REPORT INFORMATION
  Report Type: Spontaneous
  Country: BR (occurrence: BR)
  Receive Date: 20130205
  Receipt Date: 20130205
  Transmission Date: 20140127
  Serious: Yes (Other)
  Sender: FDA-Public Use
  Company Number: PHHY2013BR009977

PATIENT
  Sex: Female

DRUGS (1)
  1. OMNITROPE [Suspect]
     Route: 058

REACTIONS (3)
  - Appendicitis [Unknown]
  - Thyroid neoplasm [Unknown]
  - Hepatic neoplasm [Unknown]
